FAERS Safety Report 13610060 (Version 1)
Quarter: 2017Q2

REPORT INFORMATION
  Report Type: Spontaneous
  Country: GB (occurrence: GB)
  Receive Date: 20170603
  Receipt Date: 20170603
  Transmission Date: 20170830
  Serious: Yes (Hospitalization)
  Sender: FDA-Public Use
  Company Number: GB-TEVA-772734ACC

PATIENT
  Age: 28 Year
  Sex: Female

DRUGS (4)
  1. ETHINYLESTRADIOL [Concomitant]
     Active Substance: ETHINYL ESTRADIOL
  2. LEVONORGESTREL. [Concomitant]
     Active Substance: LEVONORGESTREL
  3. PHENOXYMETHYLPENICILLINUM [Suspect]
     Active Substance: PENICILLIN V
  4. CO-AMOXICLAV [Suspect]
     Active Substance: AMOXICILLIN\CLAVULANIC ACID

REACTIONS (2)
  - Arthralgia [Unknown]
  - Musculoskeletal stiffness [Unknown]
